FAERS Safety Report 15148310 (Version 1)
Quarter: 2018Q3

REPORT INFORMATION
  Report Type: Spontaneous
  Country: US (occurrence: US)
  Receive Date: 20180619
  Receipt Date: 20180619
  Transmission Date: 20181010
  Serious: Yes (Death)
  Sender: FDA-Public Use
  Company Number: None

PATIENT
  Age: 86 Year
  Sex: Male

DRUGS (1)
  1. ZARXIO [Suspect]
     Active Substance: FILGRASTIM-SNDZ
     Indication: PROSTATE CANCER
     Route: 058
     Dates: start: 20180503, end: 20180406

REACTIONS (1)
  - Death [None]

NARRATIVE: CASE EVENT DATE: 20180407
